FAERS Safety Report 5271287-0 (Version None)
Quarter: 2007Q1

REPORT INFORMATION
  Report Type: 
  Country: None (occurrence: None)
  Receive Date: 20070321
  Receipt Date: 20070309
  Transmission Date: 20070707
  Serious: Yes (Other)
  Sender: FDA-Public Use
  Company Number: PHBS2007JP03844

PATIENT
  Age: 82 Year
  Sex: Male

DRUGS (3)
  1. SANDOSTATIN [Suspect]
     Indication: ACROMEGALY
     Dosage: 100 UG/DAY
     Route: 058
     Dates: start: 20020101
  2. SANDOSTATIN [Suspect]
     Dosage: 50 UG/D
     Route: 058
  3. SANDOSTATIN [Suspect]
     Dosage: 200 UG/D
     Route: 058

REACTIONS (3)
  - BONE LESION [None]
  - DIARRHOEA [None]
  - PAPILLARY THYROID CANCER [None]
